FAERS Safety Report 7432336 (Version 14)
Quarter: 2013Q1

REPORT INFORMATION
  Report Type: Spontaneous
  Country: CA (occurrence: CA)
  Receive Date: 20100624
  Receipt Date: 20130212
  Transmission Date: 20140127
  Serious: Yes (Hospitalization, Other)
  Sender: FDA-Public Use
  Company Number: PHHY2009CA55052

PATIENT
  Age: 72 Year
  Sex: Female

DRUGS (6)
  1. SANDOSTATIN [Suspect]
     Dosage: UNK UKN, BID
     Route: 058
  2. SANDOSTATIN LAR [Suspect]
     Indication: POST GASTRIC SURGERY SYNDROME
     Dosage: 20 MG, ONCE A MONTH
     Route: 030
     Dates: start: 20091215
  3. SANDOSTATIN LAR [Suspect]
     Dosage: 20 MG, EVERY 4 WEEKS
     Route: 030
  4. SANDOSTATIN LAR [Suspect]
     Dosage: 20 MG, ONCE A MONTH
     Route: 030
  5. SANDOSTATIN LAR [Suspect]
     Dosage: 20 MG, EVERY 4 WEEKS
     Route: 030
     Dates: start: 20100712
  6. SANDOSTATIN LAR [Suspect]
     Dosage: 20 MG, ONCE A MONTH
     Route: 030

REACTIONS (17)
  - Anaemia [Unknown]
  - Non-Hodgkin^s lymphoma recurrent [Not Recovered/Not Resolved]
  - Neoplasm malignant [Unknown]
  - Bronchitis [Unknown]
  - Sciatica [Unknown]
  - Musculoskeletal pain [Unknown]
  - Pain in extremity [Unknown]
  - Blood glucose decreased [Unknown]
  - Blood glucose increased [Unknown]
  - Sinusitis [Unknown]
  - Headache [Unknown]
  - Influenza like illness [Unknown]
  - Diarrhoea [Recovered/Resolved]
  - Haemorrhoids [Recovered/Resolved]
  - Pruritus [Recovered/Resolved]
  - Vomiting [Unknown]
  - Frequent bowel movements [Unknown]
